FAERS Safety Report 9585883 (Version 1)
Quarter: 2013Q4

REPORT INFORMATION
  Report Type: Spontaneous
  Country: US (occurrence: None)
  Receive Date: 20131002
  Receipt Date: 20131002
  Transmission Date: 20140711
  Serious: Yes (Other)
  Sender: FDA-Public Use
  Company Number: None

PATIENT
  Age: 63 Year
  Sex: Male
  Weight: 71 kg

DRUGS (1)
  1. VANCOMYCIN [Suspect]
     Indication: DRUG THERAPY
     Route: 042
     Dates: start: 20130914, end: 20130923

REACTIONS (2)
  - Blood creatinine increased [None]
  - Antibiotic level above therapeutic [None]
